FAERS Safety Report 18902845 (Version 1)
Quarter: 2021Q1

REPORT INFORMATION
  Report Type: Spontaneous
  Country: US (occurrence: US)
  Receive Date: 20210216
  Receipt Date: 20210216
  Transmission Date: 20210420
  Serious: Yes (Disabling)
  Sender: FDA-Public Use
  Company Number: None

PATIENT
  Age: 24 Year
  Sex: Female
  Weight: 90 kg

DRUGS (1)
  1. HYDROXYCHLOROQUINE [Suspect]
     Active Substance: HYDROXYCHLOROQUINE
     Indication: ANKYLOSING SPONDYLITIS
     Dosage: ?          QUANTITY:1 TABLET(S);?
     Route: 048
     Dates: start: 20200915, end: 20210120

REACTIONS (6)
  - Abdominal discomfort [None]
  - Pain [None]
  - Abdominal distension [None]
  - Dyspnoea [None]
  - Flatulence [None]
  - Diarrhoea [None]

NARRATIVE: CASE EVENT DATE: 20201001
